FAERS Safety Report 10152605 (Version 9)
Quarter: 2015Q3

REPORT INFORMATION
  Report Type: Report from Study
  Country: US (occurrence: US)
  Receive Date: 20140505
  Receipt Date: 20150717
  Transmission Date: 20151125
  Serious: Yes (Hospitalization, Disabling, Other)
  Sender: FDA-Public Use
  Company Number: US-SA-2014SA055932

PATIENT
  Age: 60 Year
  Sex: Female

DRUGS (3)
  1. AUBAGIO [Suspect]
     Active Substance: TERIFLUNOMIDE
     Indication: MULTIPLE SCLEROSIS
     Route: 048
     Dates: start: 20140417
  2. AUBAGIO [Suspect]
     Active Substance: TERIFLUNOMIDE
     Indication: MULTIPLE SCLEROSIS
     Route: 048
     Dates: start: 20140420
  3. AUBAGIO [Suspect]
     Active Substance: TERIFLUNOMIDE
     Indication: MULTIPLE SCLEROSIS
     Route: 048
     Dates: start: 20140422

REACTIONS (13)
  - Vomiting [Not Recovered/Not Resolved]
  - Muscular weakness [Unknown]
  - Drug dose omission [Unknown]
  - Renal surgery [Unknown]
  - Stent placement [Unknown]
  - Fall [Unknown]
  - Pancreatitis [Not Recovered/Not Resolved]
  - Memory impairment [Unknown]
  - Back pain [Recovering/Resolving]
  - Headache [Recovered/Resolved]
  - Urinary tract infection [Recovering/Resolving]
  - Blood glucose increased [Unknown]
  - Urinary retention [Unknown]

NARRATIVE: CASE EVENT DATE: 20140417
